FAERS Safety Report 25685799 (Version 1)
Quarter: 2025Q3

REPORT INFORMATION
  Report Type: Spontaneous
  Country: JP (occurrence: JP)
  Receive Date: 20250815
  Receipt Date: 20250815
  Transmission Date: 20251021
  Serious: Yes (Hospitalization, Other)
  Sender: PFIZER
  Company Number: JP-PFIZER INC-202500161504

PATIENT
  Age: 75 Year
  Sex: Male

DRUGS (4)
  1. GEMCITABINE HYDROCHLORIDE [Suspect]
     Active Substance: GEMCITABINE HYDROCHLORIDE
     Indication: Ureteric cancer metastatic
     Route: 065
     Dates: start: 202401
  2. GEMCITABINE HYDROCHLORIDE [Suspect]
     Active Substance: GEMCITABINE HYDROCHLORIDE
     Indication: Ureteric cancer
  3. CARBOPLATIN [Suspect]
     Active Substance: CARBOPLATIN
     Indication: Ureteric cancer metastatic
     Route: 065
     Dates: start: 202401
  4. CARBOPLATIN [Suspect]
     Active Substance: CARBOPLATIN
     Indication: Ureteric cancer

REACTIONS (2)
  - Thrombophlebitis migrans [Not Recovered/Not Resolved]
  - Ureteric cancer recurrent [Not Recovered/Not Resolved]

NARRATIVE: CASE EVENT DATE: 20250301
